FAERS Safety Report 16725816 (Version 1)
Quarter: 2019Q3

REPORT INFORMATION
  Report Type: Spontaneous
  Country: US (occurrence: US)
  Receive Date: 20190821
  Receipt Date: 20190821
  Transmission Date: 20191005
  Serious: No
  Sender: FDA-Public Use
  Company Number: US-BIOMARINAP-US-2019-125209

PATIENT
  Sex: Male
  Weight: 129.71 kg

DRUGS (4)
  1. KUVAN [Suspect]
     Active Substance: SAPROPTERIN DIHYDROCHLORIDE
     Indication: PHENYLKETONURIA
     Dosage: UNK, QD
     Route: 065
  2. LISINOPRIL [LISINOPRIL DIHYDRATE] [Concomitant]
     Indication: HYPERTENSION
  3. FLUOXETINE [Concomitant]
     Active Substance: FLUOXETINE HYDROCHLORIDE
     Indication: ANXIETY
  4. VASCEPA [Concomitant]
     Active Substance: ICOSAPENT ETHYL
     Indication: BLOOD CHOLESTEROL INCREASED

REACTIONS (1)
  - Diarrhoea [Recovering/Resolving]
